FAERS Safety Report 5803297-6 (Version None)
Quarter: 2008Q3

REPORT INFORMATION
  Report Type: 
  Country: None (occurrence: None)
  Receive Date: 20080708
  Receipt Date: 20080623
  Transmission Date: 20090109
  Serious: Yes (Life-Threatening)
  Sender: FDA-Public Use
  Company Number: B0490070A

PATIENT
  Age: 34 Year
  Sex: Female

DRUGS (3)
  1. AUGMENTIN '125' [Suspect]
     Indication: PREMATURE RUPTURE OF MEMBRANES
     Dosage: 2G PER DAY
     Route: 042
     Dates: start: 20070905, end: 20070905
  2. SYNTOCINON [Concomitant]
     Dosage: 2UNIT SINGLE DOSE
     Dates: start: 20070905, end: 20070905
  3. VIRLIX [Concomitant]
     Indication: ATOPY
     Dosage: 1UNIT PER DAY
     Route: 065

REACTIONS (5)
  - ANAPHYLACTIC SHOCK [None]
  - ANGIOEDEMA [None]
  - BLOOD PRESSURE DECREASED [None]
  - DRUG EXPOSURE DURING PREGNANCY [None]
  - RESPIRATORY DISTRESS [None]
